FAERS Safety Report 19735877 (Version 2)
Quarter: 2022Q1

REPORT INFORMATION
  Report Type: Spontaneous
  Country: US (occurrence: US)
  Receive Date: 20210823
  Receipt Date: 20220328
  Transmission Date: 20220423
  Serious: No
  Sender: FDA-Public Use
  Company Number: US-PFIZER INC-2021642405

PATIENT
  Age: 21 Year
  Sex: Male

DRUGS (1)
  1. XELJANZ [Suspect]
     Active Substance: TOFACITINIB CITRATE
     Indication: Colitis ulcerative
     Dosage: 10 MG, 2X/DAY
     Route: 048
     Dates: start: 202103

REACTIONS (3)
  - Therapeutic product effect incomplete [Recovering/Resolving]
  - Sleep disorder [Unknown]
  - Flatulence [Unknown]

NARRATIVE: CASE EVENT DATE: 20210101
